FAERS Safety Report 7475103-8 (Version None)
Quarter: 2011Q2

REPORT INFORMATION
  Report Type: 
  Country: None (occurrence: None)
  Receive Date: 20110512
  Receipt Date: 20110422
  Transmission Date: 20111010
  Serious: No
  Sender: FDA-Public Use
  Company Number: US-B.I. PHARMACEUTICALS,INC./RIDGEFIELD-2011-BP-05100BP

PATIENT
  Age: 78 Year
  Sex: Male

DRUGS (12)
  1. SPIRIVA [Concomitant]
     Indication: CHRONIC OBSTRUCTIVE PULMONARY DISEASE
     Dosage: 18 MCG
  2. METOPROLOL SUCCINATE [Concomitant]
     Dosage: 150 MG
  3. MEDICATION NOT FURTHER SPECIFIED [Concomitant]
  4. CLARITIN [Concomitant]
     Indication: MULTIPLE ALLERGIES
     Dosage: 10 MG
  5. OMEPRAZOLE [Concomitant]
  6. MULTAQ [Concomitant]
     Dosage: 400 MG
  7. LISINOPRIL [Concomitant]
     Dosage: 20 MG
  8. FORADIL [Concomitant]
     Dosage: 24 MCG
  9. PRADAXA [Suspect]
     Indication: ATRIAL FIBRILLATION
     Dosage: 300 MG
     Route: 048
     Dates: start: 20110101
  10. MULTIPLE OTC VITAMINS AND MINERALS [Concomitant]
  11. SIMVASTATIN [Concomitant]
     Dosage: 20 MG
  12. FLUTICASONE PROPIONATE [Concomitant]
     Indication: EMPHYSEMA

REACTIONS (1)
  - DYSPNOEA [None]
